FAERS Safety Report 6707045-7 (Version None)
Quarter: 2010Q2

REPORT INFORMATION
  Report Type: 
  Country: None (occurrence: None)
  Receive Date: 20100503
  Receipt Date: 20100421
  Transmission Date: 20101027
  Serious: Yes (Other)
  Sender: FDA-Public Use
  Company Number: PHHY2010US23918

PATIENT
  Age: 72 Year
  Sex: Female
  Weight: 73.016 kg

DRUGS (6)
  1. RECLAST [Suspect]
     Indication: OSTEOPOROSIS
     Dosage: 5 MG/ 100ML
     Dates: start: 20100316, end: 20100316
  2. RECLAST [Suspect]
     Dosage: UNSPECIFIED
  3. PREDNISONE [Concomitant]
  4. SIMVASTATIN [Concomitant]
  5. LISINOPRIL [Concomitant]
  6. ACIPHEX [Concomitant]

REACTIONS (8)
  - BLOOD POTASSIUM DECREASED [None]
  - GASTROINTESTINAL DISORDER [None]
  - HYPOKALAEMIA [None]
  - MYALGIA [None]
  - NECK PAIN [None]
  - POLYMYALGIA RHEUMATICA [None]
  - PYREXIA [None]
  - WHITE BLOOD CELL COUNT INCREASED [None]
